FAERS Safety Report 25263150 (Version 1)
Quarter: 2025Q2

REPORT INFORMATION
  Report Type: Spontaneous
  Country: US (occurrence: None)
  Receive Date: 20250501
  Receipt Date: 20250501
  Transmission Date: 20250717
  Serious: Yes (Hospitalization)
  Sender: FDA-CTU
  Company Number: None

PATIENT
  Age: 82 Year
  Sex: Male

DRUGS (11)
  1. LENALIDOMIDE [Suspect]
     Active Substance: LENALIDOMIDE
     Indication: Plasma cell myeloma
     Dosage: FREQUENCY: TAKE 1 CAPSULE (10 MG TOTAL) BY MOUTH DAILY. TAKE ON DAYS 1-21 EVERY 28 DAYS.
     Route: 048
     Dates: start: 20250306
  2. ACYCLOVIR [Concomitant]
     Active Substance: ACYCLOVIR
  3. ALBUTEROL POW SULFATE [Concomitant]
  4. ALLEGRA ALRG [Concomitant]
  5. ALPRAZOLAM [Concomitant]
     Active Substance: ALPRAZOLAM
  6. ASPIRIN [Concomitant]
     Active Substance: ASPIRIN
  7. ATORVASTATIN [Concomitant]
     Active Substance: ATORVASTATIN
  8. CALCIUM CIT W/VIT D [Concomitant]
  9. CLOBETASOL LOT 0.05% [Concomitant]
  10. DARZALEX SOL [Concomitant]
  11. DEXAMETHASON POW ACETATE [Concomitant]

REACTIONS (3)
  - Infection [None]
  - Nonspecific reaction [None]
  - Therapy interrupted [None]

NARRATIVE: CASE EVENT DATE: 20250428
